FAERS Safety Report 18197168 (Version 1)
Quarter: 2020Q3

REPORT INFORMATION
  Report Type: Other
  Country: GB (occurrence: GB)
  Receive Date: 20200826
  Receipt Date: 20200826
  Transmission Date: 20201103
  Serious: Yes (Other)
  Sender: FDA-Public Use
  Company Number: GB-EMCURE PHARMACEUTICALS LTD-2020-EPL-001193

PATIENT
  Age: 79 Year
  Sex: Male
  Weight: 95 kg

DRUGS (7)
  1. TADALAFIL. [Concomitant]
     Active Substance: TADALAFIL
     Dosage: USE AS DIRECTED
     Dates: start: 20190628
  2. ATORVASTATIN [Concomitant]
     Active Substance: ATORVASTATIN
     Dosage: 1 DOSAGE FORM, DAILY
     Dates: start: 20190628
  3. MEMANTINE. [Concomitant]
     Active Substance: MEMANTINE
     Dosage: 1 DOSAGE FORM, DAILY
     Dates: start: 20191203
  4. FENBID [Concomitant]
     Active Substance: IBUPROFEN
     Dosage: 3 DOSAGE FORM, DAILY
     Dates: start: 20191008
  5. METFORMIN [Suspect]
     Active Substance: METFORMIN HYDROCHLORIDE
     Indication: PRODUCT USED FOR UNKNOWN INDICATION
     Dosage: 2 GRAM, DAILY
     Dates: start: 20080722
  6. DONEPEZIL HYDROCHLORIDE. [Concomitant]
     Active Substance: DONEPEZIL HYDROCHLORIDE
     Dosage: 1 DOSAGE FORM, DAILY
     Dates: start: 20190628
  7. FINASTERIDE. [Concomitant]
     Active Substance: FINASTERIDE
     Dosage: 1 DOSAGE FORM, DAILY
     Dates: start: 20190628

REACTIONS (1)
  - Neuropsychiatric symptoms [Unknown]

NARRATIVE: CASE EVENT DATE: 20080722
